FAERS Safety Report 7455011-9 (Version None)
Quarter: 2011Q2

REPORT INFORMATION
  Report Type: 
  Country: None (occurrence: None)
  Receive Date: 20110503
  Receipt Date: 20110426
  Transmission Date: 20111010
  Serious: Yes (Other)
  Sender: FDA-Public Use
  Company Number: VE-PFIZER INC-2011089919

PATIENT
  Age: 48 Year
  Sex: Male

DRUGS (1)
  1. CADUET [Suspect]
     Dosage: UNK
     Dates: end: 20100901

REACTIONS (1)
  - HYPOGLYCAEMIA [None]
